FAERS Safety Report 5054739-8 (Version None)
Quarter: 2006Q3

REPORT INFORMATION
  Report Type: 
  Country: None (occurrence: None)
  Receive Date: 20060719
  Receipt Date: 20060710
  Transmission Date: 20061208
  Serious: Yes (Death, Other)
  Sender: FDA-Public Use
  Company Number: PHBS2006IT10341

PATIENT
  Age: 61 Year
  Sex: Female

DRUGS (3)
  1. STEROIDS NOS [Suspect]
     Indication: RENAL TRANSPLANT
     Dosage: UNK, UNK
  2. STEROIDS NOS [Suspect]
     Dosage: 2 MG/D
  3. CYCLOSPORINE [Suspect]
     Indication: RENAL TRANSPLANT

REACTIONS (8)
  - COLON CANCER [None]
  - COLOSTOMY [None]
  - CYTOMEGALOVIRUS INFECTION [None]
  - DIARRHOEA [None]
  - EPSTEIN-BARR VIRUS INFECTION [None]
  - IRRITABLE BOWEL SYNDROME [None]
  - LYMPHADENECTOMY [None]
  - WEIGHT DECREASED [None]
